FAERS Safety Report 15506434 (Version 1)
Quarter: 2018Q4

REPORT INFORMATION
  Report Type: Spontaneous
  Country: IL (occurrence: IL)
  Receive Date: 20181016
  Receipt Date: 20181016
  Transmission Date: 20190205
  Serious: Yes (Other)
  Sender: FDA-Public Use
  Company Number: PHHY2018IL124039

PATIENT
  Age: 4 Year
  Sex: Male

DRUGS (1)
  1. TAFINLAR [Suspect]
     Active Substance: DABRAFENIB MESYLATE
     Indication: GLIOMA
     Dosage: 0.45 MG, QD
     Route: 065

REACTIONS (3)
  - Glioma [Unknown]
  - Product use in unapproved indication [Unknown]
  - Disease progression [Unknown]
